FAERS Safety Report 14630379 (Version 1)
Quarter: 2018Q1

REPORT INFORMATION
  Report Type: Spontaneous
  Country: US (occurrence: US)
  Receive Date: 20180313
  Receipt Date: 20180313
  Transmission Date: 20180509
  Serious: Yes (Disabling)
  Sender: FDA-Public Use
  Company Number: None

PATIENT
  Age: 62 Year
  Sex: Female
  Weight: 51.75 kg

DRUGS (2)
  1. FECAL TRANSPLANT TABLETS [Suspect]
     Active Substance: FECAL MICROBIOTA
     Indication: IRRITABLE BOWEL SYNDROME
     Route: 048
     Dates: start: 20171010
  2. VALTREX [Concomitant]
     Active Substance: VALACYCLOVIR HYDROCHLORIDE

REACTIONS (2)
  - Genital herpes simplex [None]
  - Product quality issue [None]

NARRATIVE: CASE EVENT DATE: 20171201
